FAERS Safety Report 7704080-7 (Version None)
Quarter: 2011Q3

REPORT INFORMATION
  Report Type: 
  Country: None (occurrence: None)
  Receive Date: 20110823
  Receipt Date: 20110815
  Transmission Date: 20111222
  Serious: Yes (Other)
  Sender: FDA-Public Use
  Company Number: GB-JNJFOC-20110612913

PATIENT
  Age: 54 Year
  Sex: Male
  Weight: 82 kg

DRUGS (9)
  1. FOLIC ACID [Concomitant]
     Route: 048
     Dates: start: 20081126
  2. METHOTREXATE [Concomitant]
     Route: 058
     Dates: start: 20081126, end: 20110601
  3. SULFASALAZINE [Concomitant]
     Route: 048
     Dates: start: 20030625
  4. CO-DYDRAMOL [Concomitant]
  5. OMEPRAZOLE [Concomitant]
  6. LACTULOSE [Concomitant]
  7. LODINE [Concomitant]
     Route: 048
  8. REMICADE [Suspect]
     Indication: PSORIATIC ARTHROPATHY
     Route: 042
     Dates: start: 20110329
  9. AMITRIPTYLINE HCL [Concomitant]

REACTIONS (1)
  - PENIS CARCINOMA [None]
